FAERS Safety Report 5268879-1 (Version None)
Quarter: 2007Q1

REPORT INFORMATION
  Report Type: 
  Country: None (occurrence: None)
  Receive Date: 20070319
  Receipt Date: 20070308
  Transmission Date: 20070707
  Serious: Yes (Other)
  Sender: FDA-Public Use
  Company Number: PHRM2007FR00619

PATIENT
  Age: 55 Year
  Sex: Female
  Weight: 51 kg

DRUGS (4)
  1. ZOMETA [Suspect]
     Indication: METASTASES TO BONE
     Dosage: 4 MG, QMO
     Route: 042
     Dates: start: 20060101
  2. SOLU-MEDROL [Suspect]
     Dosage: 40 MG, QW
  3. OXALIPLATIN [Suspect]
     Dosage: 120 MG, QW
  4. KYTRIL [Concomitant]
     Dosage: 2 MG, QW

REACTIONS (5)
  - ABSCESS MANAGEMENT [None]
  - BONE DISORDER [None]
  - OSTEONECROSIS [None]
  - TOOTH EXTRACTION [None]
  - TOOTH INFECTION [None]
